FAERS Safety Report 4480958-5 (Version None)
Quarter: 2004Q3

REPORT INFORMATION
  Report Type: 
  Country: None (occurrence: None)
  Receive Date: 20040923
  Receipt Date: 20040622
  Transmission Date: 20050211
  Serious: No
  Sender: FDA-Public Use
  Company Number: USA040568589

PATIENT
  Age: 69 Year
  Sex: Male
  Weight: 72 kg

DRUGS (3)
  1. FORTEO [Suspect]
     Indication: OSTEOPOROSIS
     Dates: start: 20040407
  2. OXYCONTIN [Concomitant]
  3. SYNTHROID [Concomitant]

REACTIONS (4)
  - BONE PAIN [None]
  - MYALGIA [None]
  - NERVOUSNESS [None]
  - PAIN [None]
